FAERS Safety Report 20527389 (Version 1)
Quarter: 2022Q1

REPORT INFORMATION
  Report Type: Spontaneous
  Country: US (occurrence: US)
  Receive Date: 20220228
  Receipt Date: 20220228
  Transmission Date: 20220423
  Serious: Yes (Other)
  Sender: FDA-Public Use
  Company Number: US-BIOVITRUM-2022US02782

PATIENT
  Age: 60 Year
  Sex: Female

DRUGS (1)
  1. ANAKINRA [Suspect]
     Active Substance: ANAKINRA
     Indication: Cutaneous lupus erythematosus
     Route: 058

REACTIONS (4)
  - Pancreatitis acute [Unknown]
  - Dizziness [Unknown]
  - Transaminases increased [Unknown]
  - Off label use [Unknown]
